FAERS Safety Report 5604929-8 (Version None)
Quarter: 2008Q1

REPORT INFORMATION
  Report Type: 
  Country: None (occurrence: None)
  Receive Date: 20080128
  Receipt Date: 20080125
  Transmission Date: 20080703
  Serious: Yes (Other)
  Sender: FDA-Public Use
  Company Number: US-ROXANE LABORATORIES, INC-2008-DE-00478GD

PATIENT

DRUGS (2)
  1. MORPHINE [Suspect]
     Indication: PAIN
     Route: 048
  2. DEXTROMETHORPHAN HYDROBROMIDE [Suspect]
     Indication: PAIN
     Route: 048

REACTIONS (1)
  - DRUG ABUSE [None]
